FAERS Safety Report 4393224-3 (Version None)
Quarter: 2004Q3

REPORT INFORMATION
  Report Type: 
  Country: None (occurrence: None)
  Receive Date: 20040701
  Receipt Date: 20040617
  Transmission Date: 20050211
  Serious: Yes (Hospitalization)
  Sender: FDA-Public Use
  Company Number: 04P-062-0257468-00

PATIENT
  Age: 34 Year
  Sex: Male

DRUGS (6)
  1. KALETRA [Suspect]
     Indication: HIV INFECTION
     Dosage: SEE IMAGE
     Route: 048
     Dates: end: 20040415
  2. KALETRA [Suspect]
     Indication: HIV INFECTION
     Dosage: SEE IMAGE
     Route: 048
     Dates: start: 20040501
  3. LAMIVUDINE [Concomitant]
  4. DIAANOSINE [Concomitant]
  5. ACETYLCYSTEINE [Concomitant]
  6. CODEINE [Concomitant]

REACTIONS (10)
  - ATRIOVENTRICULAR BLOCK SECOND DEGREE [None]
  - BUNDLE BRANCH BLOCK RIGHT [None]
  - HEAD INJURY [None]
  - INFLUENZA [None]
  - SINUS BRADYCARDIA [None]
  - SINUSITIS [None]
  - SUPERINFECTION [None]
  - SYNCOPE [None]
  - UPPER RESPIRATORY TRACT INFECTION BACTERIAL [None]
  - WOUND [None]
